FAERS Safety Report 7927117-9 (Version None)
Quarter: 2011Q4

REPORT INFORMATION
  Report Type: 
  Country: None (occurrence: None)
  Receive Date: 20111118
  Receipt Date: 20111110
  Transmission Date: 20120403
  Serious: Yes (Other)
  Sender: FDA-Public Use
  Company Number: JP-JNJFOC-20110909408

PATIENT
  Sex: Male
  Weight: 58 kg

DRUGS (7)
  1. TRAMADOL HYDROCHLORIDE/ACETAMINOPHEN [Suspect]
     Dosage: 2 DOSES, 1 PER 1 DAY
     Route: 048
     Dates: start: 20110915, end: 20110917
  2. TRAMADOL HYDROCHLORIDE/ACETAMINOPHEN [Suspect]
     Indication: CERVICOBRACHIAL SYNDROME
     Dosage: 3 DF, 1 PER 1 DAY
     Route: 048
     Dates: start: 20110915, end: 20110918
  3. PROCHLORPERAZINE [Suspect]
     Indication: PAIN
     Dosage: 1 PER 1 DAY
     Route: 048
     Dates: start: 20110915, end: 20110916
  4. TRAMADOL HYDROCHLORIDE/ACETAMINOPHEN [Suspect]
     Indication: PAIN
     Dosage: 2 DOSES, 1 PER 1 DAY
     Route: 048
     Dates: start: 20110915, end: 20110917
  5. DOMPERIDONE [Suspect]
     Indication: PAIN
     Dosage: 1 PER 1 DAY
     Route: 048
     Dates: start: 20110901, end: 20110101
  6. TRAMADOL HYDROCHLORIDE/ACETAMINOPHEN [Suspect]
     Dosage: 3 DF, 1 PER 1 DAY
     Route: 048
     Dates: start: 20110915, end: 20110918
  7. KAKKON-TO [Suspect]
     Indication: PAIN
     Dosage: 1 PER 1 DAY
     Route: 048
     Dates: start: 20110915, end: 20110918

REACTIONS (4)
  - DRUG INEFFECTIVE [None]
  - ANAPHYLACTIC REACTION [None]
  - HAEMORRHAGE SUBCUTANEOUS [None]
  - DRUG ERUPTION [None]
